FAERS Safety Report 4982360-6 (Version None)
Quarter: 2006Q2

REPORT INFORMATION
  Report Type: 
  Country: None (occurrence: None)
  Receive Date: 20060424
  Receipt Date: 20060424
  Transmission Date: 20061013
  Serious: Yes (Life-Threatening)
  Sender: FDA-Public Use
  Company Number: None

PATIENT
  Age: 42 Year
  Sex: Female

DRUGS (3)
  1. ZITHROMAX [Suspect]
     Indication: MYALGIA
     Dosage: PO
     Route: 048
     Dates: start: 20060313, end: 20060316
  2. ZITHROMAX [Suspect]
     Indication: ODYNOPHAGIA
     Dosage: PO
     Route: 048
     Dates: start: 20060313, end: 20060316
  3. ZITHROMAX [Suspect]
     Indication: PYREXIA
     Dosage: PO
     Route: 048
     Dates: start: 20060313, end: 20060316

REACTIONS (2)
  - STEVENS-JOHNSON SYNDROME [None]
  - TOXIC EPIDERMAL NECROLYSIS [None]
